FAERS Safety Report 25498780 (Version 1)
Quarter: 2025Q3

REPORT INFORMATION
  Report Type: Report from Study
  Country: EU (occurrence: EU)
  Receive Date: 20250701
  Receipt Date: 20250701
  Transmission Date: 20251021
  Serious: Yes (Other)
  Sender: ROCHE
  Company Number: US-ROCHE-10000225931

PATIENT

DRUGS (1)
  1. BEVACIZUMAB [Suspect]
     Active Substance: BEVACIZUMAB
     Indication: Neovascular age-related macular degeneration
     Route: 050

REACTIONS (7)
  - Off label use [Unknown]
  - Off label use [Unknown]
  - Iridocyclitis [Unknown]
  - Retinal occlusive vasculitis [Unknown]
  - Retinal detachment [Unknown]
  - Retinal pigment epithelial tear [Unknown]
  - Vitritis [Unknown]
